FAERS Safety Report 15527160 (Version 4)
Quarter: 2019Q3

REPORT INFORMATION
  Report Type: Report from Study
  Country: IT (occurrence: IT)
  Receive Date: 20181018
  Receipt Date: 20190826
  Transmission Date: 20191004
  Serious: Yes (Hospitalization)
  Sender: FDA-Public Use
  Company Number: IT-MYLANLABS-2018M1077619

PATIENT
  Age: 38 Year
  Sex: Female

DRUGS (1)
  1. DIAZEPAM. [Suspect]
     Active Substance: DIAZEPAM
     Indication: ARTHRALGIA
     Dosage: UNK
     Route: 048
     Dates: start: 20180521, end: 20180521

REACTIONS (3)
  - Medication error [Recovering/Resolving]
  - Intentional product misuse [Unknown]
  - Sopor [Recovering/Resolving]

NARRATIVE: CASE EVENT DATE: 20180521
